FAERS Safety Report 7620163-4 (Version None)
Quarter: 2011Q3

REPORT INFORMATION
  Report Type: 
  Country: None (occurrence: None)
  Receive Date: 20110719
  Receipt Date: 20110704
  Transmission Date: 20111222
  Serious: Yes (Other)
  Sender: FDA-Public Use
  Company Number: PHHY2011ZA60101

PATIENT

DRUGS (3)
  1. ZOLEDRONOC ACID [Suspect]
     Dosage: 5 MG, UNK
     Route: 042
     Dates: start: 20100801
  2. NEXIUM [Concomitant]
     Dosage: UNK
  3. SSRI [Concomitant]
     Dosage: UNK

REACTIONS (1)
  - BONE DENSITY DECREASED [None]
